FAERS Safety Report 9832585 (Version 1)
Quarter: 2014Q1

REPORT INFORMATION
  Report Type: Spontaneous
  Country: GB (occurrence: GB)
  Receive Date: 20140121
  Receipt Date: 20140121
  Transmission Date: 20141002
  Serious: Yes (Disabling)
  Sender: FDA-Public Use
  Company Number: GB-PFIZER INC-2014013929

PATIENT
  Age: 81 Year
  Sex: Female
  Weight: 70 kg

DRUGS (19)
  1. PREGABALIN [Suspect]
     Dosage: UNK
     Dates: start: 20131001
  2. ESOMEPRAZOLE [Concomitant]
     Dosage: UNK
     Dates: start: 20130816
  3. ALENDRONIC ACID [Concomitant]
     Dosage: UNK
     Dates: start: 20131001, end: 20131029
  4. ANASTROZOLE [Concomitant]
     Dosage: UNK
     Dates: start: 20131001
  5. LOSARTAN [Concomitant]
     Dosage: UNK
     Dates: start: 20131001
  6. PARACETAMOL [Concomitant]
     Dosage: UNK
     Dates: start: 20131001
  7. VISCOTEARS [Concomitant]
     Dosage: UNK
     Dates: start: 20131001, end: 20131224
  8. NITROFURANTOIN [Concomitant]
     Dosage: UNK
     Dates: start: 20131015, end: 20131120
  9. DOMPERIDONE [Concomitant]
     Dosage: UNK
     Dates: start: 20131016
  10. IBUPROFEN [Concomitant]
     Dosage: UNK
     Dates: start: 20131025
  11. ISPAGHULA HUSK [Concomitant]
     Dosage: UNK
     Dates: start: 20131025, end: 20131122
  12. ADCAL [Concomitant]
     Dosage: UNK
     Dates: start: 20131030, end: 20131127
  13. BUPRENORPHINE [Concomitant]
     Dosage: UNK
     Dates: start: 20131126, end: 20131210
  14. CLOBETASONE BUTYRATE [Concomitant]
     Dosage: UNK
     Dates: start: 20131126, end: 20131211
  15. CALCIUM CARBONATE [Concomitant]
     Dosage: UNK
     Dates: start: 20131126, end: 20131224
  16. LOPERAMIDE [Concomitant]
     Dosage: UNK
     Dates: start: 20131126, end: 20131224
  17. CIPROFLOXACIN [Concomitant]
     Dosage: UNK
     Dates: start: 20131204, end: 20131209
  18. DIPROBASE CREAM [Concomitant]
     Dosage: UNK
     Dates: start: 20131211, end: 20131221
  19. ZEROBASE [Concomitant]
     Dosage: UNK
     Dates: start: 20131211, end: 20140108

REACTIONS (6)
  - Insomnia [Recovered/Resolved]
  - Oropharyngeal pain [Unknown]
  - Cough [Unknown]
  - Paraesthesia [Unknown]
  - Dyspnoea [Unknown]
  - Incontinence [Unknown]
